FAERS Safety Report 5326924-9 (Version None)
Quarter: 2007Q2

REPORT INFORMATION
  Report Type: 
  Country: None (occurrence: None)
  Receive Date: 20070511
  Receipt Date: 20070427
  Transmission Date: 20071010
  Serious: Yes (Life-Threatening)
  Sender: FDA-Public Use
  Company Number: B0469264A

PATIENT
  Age: 44 Year
  Sex: Female

DRUGS (4)
  1. CIPROFLOXACIN HCL (FORMULATION UNKNOWN) (CIPROFLOXACIN HCL) (GENERIC) [Suspect]
     Indication: PYELONEPHRITIS
     Dosage: ORAL
     Route: 048
  2. SOTALOL HCL [Suspect]
     Indication: ATRIAL FIBRILLATION
     Dosage: 160 MG / TWICE PER DAY / ORAL
     Route: 048
  3. LANOXIN [Suspect]
     Indication: DRUG USE FOR UNKNOWN INDICATION
  4. WARFARIN SODIUM [Suspect]
     Indication: DRUG USE FOR UNKNOWN INDICATION

REACTIONS (4)
  - LONG QT SYNDROME [None]
  - PRESYNCOPE [None]
  - SYNCOPE [None]
  - TORSADE DE POINTES [None]
